FAERS Safety Report 5291007-3 (Version None)
Quarter: 2007Q2

REPORT INFORMATION
  Report Type: 
  Country: None (occurrence: None)
  Receive Date: 20070409
  Receipt Date: 20070312
  Transmission Date: 20071010
  Serious: Yes (Hospitalization)
  Sender: FDA-Public Use
  Company Number: BR-ELI_LILLY_AND_COMPANY-BR200704000778

PATIENT
  Age: 40 Year
  Sex: Female
  Weight: 89 kg

DRUGS (1)
  1. CYMBALTA [Suspect]
     Dosage: 60 MG, DAILY (1/D)
     Route: 048
     Dates: start: 20070309, end: 20070309

REACTIONS (8)
  - BLOOD GLUCOSE INCREASED [None]
  - BLOOD PRESSURE INCREASED [None]
  - DRY MOUTH [None]
  - EYE DISORDER [None]
  - NAUSEA [None]
  - PAIN IN EXTREMITY [None]
  - TACHYCARDIA [None]
  - TREMOR [None]
